FAERS Safety Report 23801118 (Version 1)
Quarter: 2024Q2

REPORT INFORMATION
  Report Type: Spontaneous
  Country: US (occurrence: US)
  Receive Date: 20240430
  Receipt Date: 20240430
  Transmission Date: 20240716
  Serious: Yes (Other)
  Sender: FDA-Public Use
  Company Number: US-BEH-2024171250

PATIENT
  Age: 36 Year
  Sex: Female

DRUGS (4)
  1. PRIVIGEN [Suspect]
     Active Substance: HUMAN IMMUNOGLOBULIN G
     Indication: Immunodeficiency common variable
     Dosage: 30 MG, QMT (EVERY 4 WEEKS)
     Route: 042
     Dates: start: 202302
  2. EPINEPHRINE [Concomitant]
     Active Substance: EPINEPHRINE
  3. HUMIRA [Concomitant]
     Active Substance: ADALIMUMAB
  4. XOLAIR [Concomitant]
     Active Substance: OMALIZUMAB

REACTIONS (1)
  - Psoriatic arthropathy [Unknown]

NARRATIVE: CASE EVENT DATE: 20240101
